FAERS Safety Report 8485488-1 (Version None)
Quarter: 2012Q3

REPORT INFORMATION
  Report Type: 
  Country: None (occurrence: None)
  Receive Date: 20120703
  Receipt Date: 20120628
  Transmission Date: 20120928
  Serious: Yes (Death)
  Sender: FDA-Public Use
  Company Number: US-ROCHE-1083127

PATIENT
  Sex: Female

DRUGS (2)
  1. XELODA [Suspect]
     Indication: OVARIAN CANCER
     Route: 048
     Dates: start: 20110203, end: 20120101
  2. ABRAXANE [Concomitant]
     Indication: OVARIAN CANCER
     Route: 042
     Dates: end: 20120101

REACTIONS (2)
  - DEATH [None]
  - SKIN EXFOLIATION [None]
